FAERS Safety Report 8124643 (Version 3)
Quarter: 2013Q3

REPORT INFORMATION
  Report Type: Report from Study
  Country: AR (occurrence: AR)
  Receive Date: 20110907
  Receipt Date: 20130725
  Transmission Date: 20140515
  Serious: Yes (Other)
  Sender: FDA-Public Use
  Company Number: AR-ROCHE-GNE323643

PATIENT
  Sex: Female

DRUGS (1)
  1. RANIBIZUMAB [Suspect]
     Indication: VISUAL IMPAIRMENT
     Dosage: 1 DF, 1/MONTH
     Route: 050
     Dates: start: 2011

REACTIONS (7)
  - Heart rate decreased [Recovering/Resolving]
  - Tendonitis [Not Recovered/Not Resolved]
  - Arthralgia [Recovering/Resolving]
  - Bone pain [Recovering/Resolving]
  - Fatigue [Unknown]
  - Malaise [Unknown]
  - Accident [Unknown]
